FAERS Safety Report 20754353 (Version 1)
Quarter: 2022Q2

REPORT INFORMATION
  Report Type: Spontaneous
  Country: US (occurrence: None)
  Receive Date: 20220426
  Receipt Date: 20220426
  Transmission Date: 20220721
  Serious: No
  Sender: FDA-Public Use
  Company Number: US-ROCHE-2863760

PATIENT
  Sex: Female

DRUGS (10)
  1. ESBRIET [Suspect]
     Active Substance: PIRFENIDONE
     Indication: Product used for unknown indication
     Route: 048
  2. CYCLOBENZAPRINE [Concomitant]
     Active Substance: CYCLOBENZAPRINE
  3. AZITHROMYCIN [Concomitant]
     Active Substance: AZITHROMYCIN
  4. CLINDAMYCIN [Concomitant]
     Active Substance: CLINDAMYCIN
  5. GABAPENTIN [Concomitant]
     Active Substance: GABAPENTIN
  6. GLIPIZIDE ER [Concomitant]
     Active Substance: GLIPIZIDE
  7. LISINOPRIL [Concomitant]
     Active Substance: LISINOPRIL
  8. METFORMIN HYDROCHLORIDE [Concomitant]
     Active Substance: METFORMIN HYDROCHLORIDE
  9. NITROGLYCERIN [Concomitant]
     Active Substance: NITROGLYCERIN
  10. PANTOPRAZOLE [Concomitant]
     Active Substance: PANTOPRAZOLE

REACTIONS (2)
  - Muscle spasms [Not Recovered/Not Resolved]
  - Gastric disorder [Not Recovered/Not Resolved]
